FAERS Safety Report 7028966-4 (Version None)
Quarter: 2010Q4

REPORT INFORMATION
  Report Type: 
  Country: None (occurrence: None)
  Receive Date: 20101005
  Receipt Date: 20100930
  Transmission Date: 20110411
  Serious: Yes (Other)
  Sender: FDA-Public Use
  Company Number: A0800704A

PATIENT
  Age: 53 Year
  Sex: Female

DRUGS (2)
  1. AVANDIA [Suspect]
     Indication: DIABETES MELLITUS
     Dosage: 8MG PER DAY
     Route: 048
     Dates: start: 20060101, end: 20070101
  2. AVANDAMET [Suspect]
     Route: 048
     Dates: start: 20040101, end: 20060101

REACTIONS (2)
  - CEREBROVASCULAR ACCIDENT [None]
  - HEART INJURY [None]
